FAERS Safety Report 20432067 (Version 4)
Quarter: 2022Q4

REPORT INFORMATION
  Report Type: Report from Study
  Country: TR (occurrence: TR)
  Receive Date: 20220204
  Receipt Date: 20221014
  Transmission Date: 20230113
  Serious: Yes (Hospitalization)
  Sender: FDA-Public Use
  Company Number: TR-GLAXOSMITHKLINE-TR2021GSK201754

PATIENT

DRUGS (15)
  1. BELANTAMAB MAFODOTIN [Suspect]
     Active Substance: BELANTAMAB MAFODOTIN
     Indication: Plasma cell myeloma
     Dosage: 159.75 MG
     Route: 042
     Dates: start: 20210915, end: 20210915
  2. BELANTAMAB MAFODOTIN [Suspect]
     Active Substance: BELANTAMAB MAFODOTIN
     Dosage: 112.28 MG
     Route: 042
     Dates: start: 20211013, end: 20211013
  3. BELANTAMAB MAFODOTIN [Suspect]
     Active Substance: BELANTAMAB MAFODOTIN
     Dosage: 119.70 MG
     Route: 042
     Dates: start: 20220317, end: 20220317
  4. POMALIDOMIDE [Suspect]
     Active Substance: POMALIDOMIDE
     Indication: Plasma cell myeloma
     Dosage: 4MG/DAY (1 OF 28 DAYS CYCLE)
     Route: 048
     Dates: start: 20210915, end: 20220406
  5. DEXAMETHASONE [Suspect]
     Active Substance: DEXAMETHASONE
     Indication: Plasma cell myeloma
     Dosage: 40 MG/DAY (1,8,15 AND 22 OF 28 DAYS CYCLE)
     Route: 048
     Dates: start: 20210915, end: 20220407
  6. ASPIRIN [Concomitant]
     Active Substance: ASPIRIN
     Indication: Thrombosis prophylaxis
     Dosage: 100 MG, QD
     Route: 048
     Dates: start: 20210915, end: 20210921
  7. ENOXAPARIN SODIUM [Concomitant]
     Active Substance: ENOXAPARIN SODIUM
     Indication: Fibrin D dimer increased
     Dosage: 0.6 ML, BID
     Route: 058
     Dates: start: 20210922
  8. ALLOPURINOL [Concomitant]
     Active Substance: ALLOPURINOL
     Indication: Prophylaxis
     Dosage: 300 MG, QD
     Route: 048
     Dates: start: 20210915
  9. TRIMETHOPRIM [Concomitant]
     Active Substance: TRIMETHOPRIM
     Indication: Antibiotic prophylaxis
     Dosage: 160 MG, 3 TIMES PER WEEK
     Route: 048
     Dates: start: 20210915
  10. TRIMETHOPRIM [Concomitant]
     Active Substance: TRIMETHOPRIM
     Indication: Infection
     Dosage: 160 MG, BID
     Route: 042
     Dates: start: 20211012, end: 20211015
  11. SULFAMETHOXAZOLE [Concomitant]
     Active Substance: SULFAMETHOXAZOLE
     Indication: Antibiotic prophylaxis
     Dosage: 800 MG, 3 TIMES PER WEEK
     Route: 048
     Dates: start: 20210915
  12. LANSOPRAZOLE [Concomitant]
     Active Substance: LANSOPRAZOLE
     Indication: Gastrooesophageal reflux prophylaxis
     Dosage: 30 MG, QD
     Route: 048
     Dates: start: 20210915
  13. VALACYCLOVIR [Concomitant]
     Active Substance: VALACYCLOVIR HYDROCHLORIDE
     Indication: Antiviral prophylaxis
     Dosage: 500 MG, QD
     Route: 048
     Dates: start: 20210915
  14. TROPICAMIDE [Concomitant]
     Active Substance: TROPICAMIDE
     Indication: Prophylaxis
     Dosage: 5 ML, QD
     Route: 047
     Dates: start: 20210915
  15. FAMOTIDINE [Concomitant]
     Active Substance: FAMOTIDINE
     Indication: Gastrointestinal disorder prophylaxis
     Dosage: 40 MG, QD
     Route: 048
     Dates: start: 20211206, end: 20211209

REACTIONS (2)
  - Pancytopenia [Recovered/Resolved]
  - Cytomegalovirus infection [Recovered/Resolved]

NARRATIVE: CASE EVENT DATE: 20210922
